FAERS Safety Report 4340723-6 (Version None)
Quarter: 2004Q2

REPORT INFORMATION
  Report Type: 
  Country: None (occurrence: None)
  Receive Date: 20040413
  Receipt Date: 20040321
  Transmission Date: 20050107
  Serious: No
  Sender: FDA-Public Use
  Company Number: 2004UW06341

PATIENT
  Age: 40 Year

DRUGS (4)
  1. CRESTOR [Suspect]
     Dosage: TOOK CRESTOR SAMPLES
     Dates: start: 20040304
  2. MONOPRIL [Concomitant]
  3. METAGLIP [Concomitant]
  4. ASPIRIN [Concomitant]

REACTIONS (6)
  - ALANINE AMINOTRANSFERASE INCREASED [None]
  - ASPARTATE AMINOTRANSFERASE INCREASED [None]
  - BLOOD BILIRUBIN INCREASED [None]
  - FATIGUE [None]
  - JAUNDICE [None]
  - NAUSEA [None]
